FAERS Safety Report 4498440-8 (Version None)
Quarter: 2004Q4

REPORT INFORMATION
  Report Type: 
  Country: None (occurrence: None)
  Receive Date: 20041105
  Receipt Date: 20041022
  Transmission Date: 20050328
  Serious: Yes (Hospitalization, Disabling)
  Sender: FDA-Public Use
  Company Number: 2004AP05463

PATIENT
  Age: 72 Year
  Sex: Male
  Weight: 72 kg

DRUGS (7)
  1. IRESSA [Suspect]
     Indication: NON-SMALL CELL LUNG CANCER
     Dosage: 250 MG DAILY PO
     Route: 048
     Dates: start: 20041007
  2. ALDACTONE [Suspect]
     Dosage: 25 MG DAILY PO
     Route: 048
     Dates: end: 20041021
  3. COZAAR [Suspect]
     Dosage: 50 MG DAILY PO
     Route: 048
     Dates: end: 20041021
  4. LASIX [Suspect]
     Dosage: 40 MG DAILY PO
     Route: 048
     Dates: end: 20041021
  5. LOSEC [Concomitant]
  6. ASCAL [Concomitant]
  7. ACETAMINOPHEN [Concomitant]

REACTIONS (4)
  - BLOOD CREATINE INCREASED [None]
  - BLOOD UREA INCREASED [None]
  - DEHYDRATION [None]
  - DIARRHOEA [None]
